FAERS Safety Report 24283862 (Version 1)
Quarter: 2024Q3

REPORT INFORMATION
  Report Type: Spontaneous
  Country: US (occurrence: US)
  Receive Date: 20240905
  Receipt Date: 20240905
  Transmission Date: 20241016
  Serious: Yes (Death, Hospitalization)
  Sender: STRIDES
  Company Number: US-STRIDES ARCOLAB LIMITED-2024SP011090

PATIENT
  Age: 72 Year
  Sex: Male

DRUGS (14)
  1. OLANZAPINE [Suspect]
     Active Substance: OLANZAPINE
     Indication: Psychotic disorder
     Dosage: UNK
     Route: 065
  2. OXYCODONE [Suspect]
     Active Substance: OXYCODONE
     Indication: Abdominal pain
     Dosage: UNK
     Route: 065
  3. HALOPERIDOL [Suspect]
     Active Substance: HALOPERIDOL
     Indication: Psychotic disorder
     Dosage: UNK
     Route: 065
  4. LEUCOVORIN [Suspect]
     Active Substance: LEUCOVORIN\LEUCOVORIN CALCIUM
     Indication: Adenocarcinoma pancreas
     Dosage: UNK
     Route: 065
  5. LEUCOVORIN [Suspect]
     Active Substance: LEUCOVORIN\LEUCOVORIN CALCIUM
     Indication: Metastases to peritoneum
  6. FLUOROURACIL [Suspect]
     Active Substance: FLUOROURACIL
     Indication: Adenocarcinoma pancreas
     Dosage: UNK
     Route: 065
  7. FLUOROURACIL [Suspect]
     Active Substance: FLUOROURACIL
     Indication: Metastases to peritoneum
  8. IRINOTECAN [Suspect]
     Active Substance: IRINOTECAN
     Indication: Adenocarcinoma pancreas
     Dosage: UNK
     Route: 065
  9. IRINOTECAN [Suspect]
     Active Substance: IRINOTECAN
     Indication: Metastases to peritoneum
  10. APIXABAN [Suspect]
     Active Substance: APIXABAN
     Indication: Portal vein thrombosis
     Dosage: UNK
     Route: 065
  11. HYDROMORPHONE [Suspect]
     Active Substance: HYDROMORPHONE
     Indication: Abdominal pain
     Dosage: UNK
     Route: 065
  12. DIPHENHYDRAMINE [Suspect]
     Active Substance: DIPHENHYDRAMINE
     Indication: Psychotic disorder
     Dosage: UNK
     Route: 065
  13. QUETIAPINE [Suspect]
     Active Substance: QUETIAPINE
     Indication: Psychotic disorder
     Dosage: UNK
     Route: 065
  14. RISPERIDONE [Suspect]
     Active Substance: RISPERIDONE
     Indication: Psychotic disorder
     Dosage: UNK
     Route: 065

REACTIONS (2)
  - Death [Fatal]
  - Therapy non-responder [Unknown]
